FAERS Safety Report 4524499-5 (Version None)
Quarter: 2004Q4

REPORT INFORMATION
  Report Type: 
  Country: None (occurrence: None)
  Receive Date: 20041117
  Receipt Date: 20040525
  Transmission Date: 20050328
  Serious: Yes (Other)
  Sender: FDA-Public Use
  Company Number: US-JNJFOC-20031005368

PATIENT
  Age: 51 Year
  Sex: Female

DRUGS (4)
  1. LEVAQUIN [Suspect]
     Indication: EAR INFECTION
     Dosage: 500 MG, ORAL
     Route: 048
     Dates: start: 20030610, end: 20030619
  2. SYNTHROID [Concomitant]
  3. EFFEXOR [Concomitant]
  4. ENALAPRIL (ENALAPRIL) [Concomitant]

REACTIONS (1)
  - TENDON RUPTURE [None]
